FAERS Safety Report 16667433 (Version 1)
Quarter: 2019Q3

REPORT INFORMATION
  Report Type: Spontaneous
  Country: US (occurrence: US)
  Receive Date: 20190805
  Receipt Date: 20190805
  Transmission Date: 20191004
  Serious: Yes (Hospitalization)
  Sender: FDA-Public Use
  Company Number: US-BRAINTREE LABORATORIES-190413-1

PATIENT
  Age: 69 Year
  Sex: Female
  Weight: 81.65 kg

DRUGS (1)
  1. SUPREP BOWEL PREP [Suspect]
     Active Substance: MAGNESIUM SULFATE\POTASSIUM SULFATE\SODIUM SULFATE
     Indication: COLONOSCOPY
     Dosage: {1 X 6OZ. BOTTLE
     Route: 048
     Dates: start: 20190723, end: 20190723

REACTIONS (11)
  - Erythema [None]
  - Vomiting [None]
  - Headache [None]
  - Faeces discoloured [None]
  - Pain in extremity [None]
  - Fatigue [None]
  - Feeling cold [None]
  - Amnesia [None]
  - Dyskinesia [None]
  - Nausea [None]
  - Colitis [None]

NARRATIVE: CASE EVENT DATE: 20190723
